FAERS Safety Report 6163712-8 (Version None)
Quarter: 2009Q2

REPORT INFORMATION
  Report Type: 
  Country: None (occurrence: None)
  Receive Date: 20090422
  Receipt Date: 20090417
  Transmission Date: 20091009
  Serious: Yes (Hospitalization)
  Sender: FDA-Public Use
  Company Number: DE-JNJFOC-20090303927

PATIENT
  Age: 73 Year
  Sex: Female
  Weight: 64 kg

DRUGS (9)
  1. DOXORUBICIN HCL [Suspect]
     Route: 042
  2. DOXORUBICIN HCL [Suspect]
     Indication: BREAST CANCER
     Dosage: CYCLE 1
     Route: 042
  3. HERCEPTIN [Suspect]
     Indication: BREAST CANCER
     Route: 042
  4. ZOFRAN [Concomitant]
     Indication: PROPHYLAXIS OF NAUSEA AND VOMITING
     Route: 048
  5. METOCLOPRAMIDE [Concomitant]
     Indication: VOMITING
     Route: 048
  6. LOPERAMIDE HCL [Concomitant]
     Indication: DIARRHOEA
     Route: 048
  7. ACETAMINOPHEN [Concomitant]
     Indication: HEADACHE
     Route: 048
  8. CARBAMAZEPINE [Concomitant]
     Indication: EPILEPSY
     Route: 048
  9. NOVAMINSULFON [Concomitant]
     Indication: PAIN
     Route: 048

REACTIONS (4)
  - CARDIAC FAILURE [None]
  - MYOCARDIAL INFARCTION [None]
  - NAUSEA [None]
  - PYREXIA [None]
